FAERS Safety Report 17358430 (Version 1)
Quarter: 2020Q1

REPORT INFORMATION
  Report Type: Spontaneous
  Country: PL (occurrence: PL)
  Receive Date: 20200201
  Receipt Date: 20200201
  Transmission Date: 20200409
  Serious: Yes (Other)
  Sender: FDA-Public Use
  Company Number: PL-TEVA-2020-PL-1178218

PATIENT
  Age: 64 Year
  Sex: Female
  Weight: 49 kg

DRUGS (3)
  1. LEVOFOLIC [Suspect]
     Active Substance: LEUCOVORIN
     Indication: COLON CANCER
     Dosage: 0.2G/4ML, DOSE: 300 MG
     Route: 042
     Dates: start: 20190213
  2. FLUOROURACIL. [Suspect]
     Active Substance: FLUOROURACIL
     Indication: COLON CANCER
     Dosage: 5G/100ML, DOSE: 2400 MG
     Route: 042
     Dates: start: 20190213
  3. CAMPTO [Suspect]
     Active Substance: IRINOTECAN
     Indication: COLON CANCER
     Dosage: 0.1G/5ML, DOSE: 260 MG
     Route: 042
     Dates: start: 20190213

REACTIONS (2)
  - Stomatitis [Recovering/Resolving]
  - Asthenia [Recovering/Resolving]

NARRATIVE: CASE EVENT DATE: 20190305
